FAERS Safety Report 4872969-2 (Version None)
Quarter: 2006Q1

REPORT INFORMATION
  Report Type: 
  Country: None (occurrence: None)
  Receive Date: 20060105
  Receipt Date: 20050531
  Transmission Date: 20060701
  Serious: Yes (Hospitalization)
  Sender: FDA-Public Use
  Company Number: US-BRISTOL-MYERS SQUIBB COMPANY-12989000

PATIENT
  Age: 54 Year
  Sex: Male

DRUGS (1)
  1. SERZONE [Suspect]

REACTIONS (2)
  - ERECTILE DYSFUNCTION [None]
  - PRIAPISM [None]
